FAERS Safety Report 25679505 (Version 1)
Quarter: 2025Q3

REPORT INFORMATION
  Report Type: Spontaneous
  Country: US (occurrence: US)
  Receive Date: 20250814
  Receipt Date: 20250814
  Transmission Date: 20251020
  Serious: No
  Sender: ABBVIE
  Company Number: US-ABBVIE-6413805

PATIENT
  Age: 64 Year
  Sex: Female

DRUGS (1)
  1. HUMIRA [Suspect]
     Active Substance: ADALIMUMAB
     Indication: Rheumatoid arthritis
     Route: 058

REACTIONS (6)
  - Gait disturbance [Unknown]
  - Injection site discharge [Not Recovered/Not Resolved]
  - Oedema [Not Recovered/Not Resolved]
  - Rash papular [Unknown]
  - Inflammation [Not Recovered/Not Resolved]
  - Pain [Unknown]

NARRATIVE: CASE EVENT DATE: 20250806
